FAERS Safety Report 6261094-4 (Version None)
Quarter: 2009Q3

REPORT INFORMATION
  Report Type: 
  Country: None (occurrence: None)
  Receive Date: 20090709
  Receipt Date: 20090630
  Transmission Date: 20100115
  Serious: No
  Sender: FDA-Public Use
  Company Number: US-B.I. PHARMACEUTICALS,INC./RIDGEFIELD-2009-BP-06736BP

PATIENT
  Sex: Female
  Weight: 51.8 kg

DRUGS (9)
  1. SPIRIVA [Suspect]
     Indication: EMPHYSEMA
     Dosage: 18 MCG
     Route: 055
     Dates: start: 20040101
  2. ACIPHEX [Concomitant]
     Indication: GASTROOESOPHAGEAL REFLUX DISEASE
  3. PEPCID AC [Concomitant]
     Indication: GASTROOESOPHAGEAL REFLUX DISEASE
  4. RESTASIS [Concomitant]
     Indication: DRY EYE
     Route: 048
     Dates: start: 20090401
  5. XOPENEX [Concomitant]
  6. XANAX [Concomitant]
  7. ASPIRIN [Concomitant]
  8. TYLENOL (CAPLET) [Concomitant]
  9. SINGULAIR [Concomitant]
     Dosage: 10 MG

REACTIONS (5)
  - ANIMAL BITE [None]
  - DRUG INEFFECTIVE [None]
  - DYSPNOEA [None]
  - FATIGUE [None]
  - INFECTION [None]
